FAERS Safety Report 19721345 (Version 2)
Quarter: 2023Q4

REPORT INFORMATION
  Report Type: Spontaneous
  Country: US (occurrence: US)
  Receive Date: 20210819
  Receipt Date: 20231106
  Transmission Date: 20240109
  Serious: Yes (Hospitalization)
  Sender: FDA-Public Use
  Company Number: US-MYLANLABS-2021M1052918

PATIENT
  Age: 54 Year
  Sex: Female

DRUGS (7)
  1. DAPTOMYCIN [Interacting]
     Active Substance: DAPTOMYCIN
     Indication: Soft tissue infection
     Dosage: 750 MILLIGRAM, QD, 10 MG/KG OF IDEAL BODY WEIGHT FOR 4 WEEKS.
     Route: 065
  2. DAPTOMYCIN [Interacting]
     Active Substance: DAPTOMYCIN
     Indication: Osteomyelitis
  3. DAPTOMYCIN [Interacting]
     Active Substance: DAPTOMYCIN
     Indication: Skin infection
  4. DAPTOMYCIN [Interacting]
     Active Substance: DAPTOMYCIN
     Indication: Staphylococcal infection
  5. DAPTOMYCIN [Interacting]
     Active Substance: DAPTOMYCIN
     Indication: Enterococcal infection
  6. ATORVASTATIN [Interacting]
     Active Substance: ATORVASTATIN
     Indication: Coronary artery disease
     Dosage: 80 MILLIGRAM, QD
     Route: 065
  7. LEFLUNOMIDE [Interacting]
     Active Substance: LEFLUNOMIDE
     Indication: Psoriatic arthropathy
     Dosage: UNK
     Route: 065

REACTIONS (2)
  - Rhabdomyolysis [Recovering/Resolving]
  - Drug interaction [Recovering/Resolving]
